FAERS Safety Report 4868830-X (Version None)
Quarter: 2005Q4

REPORT INFORMATION
  Report Type: 
  Country: None (occurrence: None)
  Receive Date: 20051223
  Receipt Date: 20051208
  Transmission Date: 20060501
  Serious: Yes (Hospitalization)
  Sender: FDA-Public Use
  Company Number: DE200512001439

PATIENT
  Sex: Female

DRUGS (1)
  1. GEMZAR [Suspect]
     Indication: GALLBLADDER CANCER
     Dosage: 1000 MG/M2, OTHER; INTRAVENOUS
     Route: 042
     Dates: start: 20040101

REACTIONS (4)
  - CARDIAC FAILURE [None]
  - CARDIOMYOPATHY [None]
  - DYSPNOEA [None]
  - OEDEMA [None]
